FAERS Safety Report 4338203-7 (Version None)
Quarter: 2004Q2

REPORT INFORMATION
  Report Type: 
  Country: None (occurrence: None)
  Receive Date: 20040409
  Receipt Date: 20040402
  Transmission Date: 20050107
  Serious: Yes (Hospitalization, Other)
  Sender: FDA-Public Use
  Company Number: 2004-04-0042

PATIENT
  Age: 70 Year
  Sex: Male

DRUGS (2)
  1. VIRAFERONPEG [Suspect]
     Dates: start: 20030901, end: 20040301
  2. REBETOL [Suspect]
     Indication: HEPATITIS C
     Dosage: ORAL
     Route: 048
     Dates: start: 20030901, end: 20040301

REACTIONS (4)
  - DEAFNESS UNILATERAL [None]
  - TINNITUS [None]
  - VERTIGO [None]
  - VOMITING [None]
